FAERS Safety Report 5343337-4 (Version None)
Quarter: 2007Q2

REPORT INFORMATION
  Report Type: 
  Country: None (occurrence: None)
  Receive Date: 20070503
  Receipt Date: 20060605
  Transmission Date: 20071010
  Serious: Yes (Hospitalization)
  Sender: FDA-Public Use
  Company Number: US200602004887

PATIENT
  Age: 43 Year
  Sex: Female

DRUGS (4)
  1. HUMATROPE [Suspect]
     Indication: PITUITARY TUMOUR
     Dates: start: 19990101, end: 20050201
  2. SYNTHROID [Concomitant]
  3. LIPITOR [Concomitant]
  4. ZOCOR [Concomitant]

REACTIONS (1)
  - PITUITARY TUMOUR RECURRENT [None]
